FAERS Safety Report 17680482 (Version 1)
Quarter: 2020Q2

REPORT INFORMATION
  Report Type: Spontaneous
  Country: FR (occurrence: FR)
  Receive Date: 20200417
  Receipt Date: 20200417
  Transmission Date: 20200714
  Serious: Yes (Death, Hospitalization)
  Sender: FDA-Public Use
  Company Number: FR-MYLANLABS-2020M1039085

PATIENT
  Age: 64 Year
  Sex: Female

DRUGS (11)
  1. ALVITYL                            /02362701/ [Concomitant]
     Dosage: 1 DOSAGE FORM, QD
     Route: 048
     Dates: start: 20191122
  2. FILGRASTIM [Concomitant]
     Active Substance: FILGRASTIM
     Dosage: 1 MILLIGRAM, QD
     Route: 042
     Dates: start: 20191122
  3. METHOTREXATE. [Suspect]
     Active Substance: METHOTREXATE
     Indication: BURKITT^S LYMPHOMA
     Dosage: NON RENSEIGNEE
     Route: 065
     Dates: start: 20191003
  4. ACICLOVIR [Concomitant]
     Active Substance: ACYCLOVIR
     Dosage: 750 MILLIGRAM, QD
     Route: 042
     Dates: start: 20191122
  5. MORPHINE [Concomitant]
     Active Substance: MORPHINE
     Dosage: SI BESOIN
     Route: 042
     Dates: start: 20191122
  6. INSULINE                           /01223401/ [Concomitant]
     Active Substance: INSULIN NOS
     Dosage: UNK
     Route: 065
     Dates: start: 20191122
  7. PRIMPERAN [Concomitant]
     Active Substance: METOCLOPRAMIDE HYDROCHLORIDE
     Dosage: 40 MILLIGRAM, QD
     Route: 042
     Dates: start: 20191122
  8. BACTRIM [Concomitant]
     Active Substance: SULFAMETHOXAZOLE\TRIMETHOPRIM
     Dosage: 1 DOSAGE FORM, QD
     Route: 042
     Dates: start: 20191122
  9. ZOPHREN                            /00955301/ [Concomitant]
     Active Substance: ONDANSETRON
     Dosage: SI NAUSEE ET VOMISSEMENT
     Route: 042
     Dates: start: 20191122
  10. PANTOPRAZOLE [Concomitant]
     Active Substance: PANTOPRAZOLE
     Dosage: 40 MILLIGRAM, QD
     Route: 042
     Dates: start: 20191122
  11. PREGABALINE [Concomitant]
     Active Substance: PREGABALIN
     Dosage: 150 MILLIGRAM, QD
     Route: 048
     Dates: start: 20191122

REACTIONS (2)
  - Condition aggravated [Fatal]
  - Lung disorder [Fatal]

NARRATIVE: CASE EVENT DATE: 20191004
